FAERS Safety Report 14996141 (Version 1)
Quarter: 2018Q2

REPORT INFORMATION
  Report Type: Spontaneous
  Country: FR (occurrence: FR)
  Receive Date: 20180611
  Receipt Date: 20180611
  Transmission Date: 20180711
  Serious: Yes (Death, Life-Threatening)
  Sender: FDA-Public Use
  Company Number: FR-TEVA-2018-FR-904863

PATIENT
  Age: 26 Year
  Sex: Male
  Weight: 65 kg

DRUGS (6)
  1. ENDOXAN [Suspect]
     Active Substance: CYCLOPHOSPHAMIDE
     Indication: BONE MARROW TRANSPLANT
     Dosage: 3 PRISES : 02/11, 11/11 ET 12/11
     Route: 042
     Dates: start: 20171102, end: 20171111
  2. FLUDARABINE (PHOSPHATE DE) [Suspect]
     Active Substance: FLUDARABINE PHOSPHATE
     Indication: BONE MARROW TRANSPLANT
     Dosage: 20 MG/M2 DAILY;
     Route: 042
     Dates: start: 20171026, end: 20171029
  3. BUSILVEX 6 MG/ML, SOLUTION ? DILUER POUR PERFUSION [Suspect]
     Active Substance: BUSULFAN
     Indication: BONE MARROW TRANSPLANT
     Route: 042
     Dates: start: 20171103, end: 20171104
  4. ARACYTINE [Suspect]
     Active Substance: CYTARABINE
     Indication: BONE MARROW TRANSPLANT
     Route: 042
     Dates: start: 20171026, end: 20171029
  5. MESNA EG 100 MG/ML, SOLUTION INJECTABLE POUR PERFUSION [Suspect]
     Active Substance: MESNA
     Route: 042
     Dates: start: 20171102, end: 20171112
  6. AMSACRINE [Suspect]
     Active Substance: AMSACRINE
     Indication: BONE MARROW TRANSPLANT
     Route: 042
     Dates: start: 20171026, end: 20171029

REACTIONS (2)
  - Venoocclusive liver disease [Fatal]
  - Septic shock [Fatal]

NARRATIVE: CASE EVENT DATE: 201711
